FAERS Safety Report 14621341 (Version 1)
Quarter: 2018Q1

REPORT INFORMATION
  Report Type: Spontaneous
  Country: GB (occurrence: GB)
  Receive Date: 20180310
  Receipt Date: 20180310
  Transmission Date: 20180509
  Serious: Yes (Other)
  Sender: FDA-Public Use
  Company Number: GB-AUROBINDO-AUR-APL-2018-012930

PATIENT
  Age: 29 Year
  Sex: Female

DRUGS (1)
  1. METRONIDAZOLE. [Suspect]
     Active Substance: METRONIDAZOLE
     Indication: BACTERIAL VAGINOSIS
     Dosage: ()
     Route: 048
     Dates: start: 20171101, end: 20171101

REACTIONS (8)
  - Vulvovaginal swelling [Recovered/Resolved]
  - Dyspnoea [Unknown]
  - Throat tightness [Unknown]
  - Cough [Recovered/Resolved]
  - Angular cheilitis [Unknown]
  - Vulvovaginal pain [Recovered/Resolved]
  - Oral pruritus [Unknown]
  - Mouth swelling [Recovered/Resolved]

NARRATIVE: CASE EVENT DATE: 20171101
